FAERS Safety Report 26197384 (Version 1)
Quarter: 2025Q4

REPORT INFORMATION
  Report Type: Spontaneous
  Country: US (occurrence: US)
  Receive Date: 20251224
  Receipt Date: 20251224
  Transmission Date: 20260118
  Serious: No
  Sender: MADRIGAL PHARMACEUTICALS
  Company Number: US-MADRIGAL PHARMACEUTICALS, INC-2025USREZ11623

PATIENT

DRUGS (2)
  1. REZDIFFRA [Suspect]
     Active Substance: RESMETIROM
     Indication: Metabolic dysfunction-associated steatohepatitis
     Dosage: UNK, UNKNOWN, QD
     Route: 048
     Dates: end: 2025
  2. REZDIFFRA [Suspect]
     Active Substance: RESMETIROM
     Dosage: UNK UNK, QOD
     Route: 048
     Dates: start: 2025, end: 2025

REACTIONS (1)
  - Diarrhoea [Unknown]
